FAERS Safety Report 16198155 (Version 2)
Quarter: 2019Q2

REPORT INFORMATION
  Report Type: Report from Study
  Country: GB (occurrence: GB)
  Receive Date: 20190415
  Receipt Date: 20190418
  Transmission Date: 20190711
  Serious: No
  Sender: FDA-Public Use
  Company Number: GB-ROCHE-2303446

PATIENT
  Age: 44 Year
  Sex: Female

DRUGS (1)
  1. OCREVUS [Suspect]
     Active Substance: OCRELIZUMAB
     Indication: RELAPSING-REMITTING MULTIPLE SCLEROSIS
     Dosage: SECOND DOSE 300 MG
     Route: 065

REACTIONS (3)
  - Dizziness [Unknown]
  - Candida infection [Unknown]
  - Urinary tract infection [Unknown]
